FAERS Safety Report 6878115-8 (Version None)
Quarter: 2010Q2

REPORT INFORMATION
  Report Type: 
  Country: None (occurrence: None)
  Receive Date: 20100616
  Receipt Date: 20100218
  Transmission Date: 20101027
  Serious: No
  Sender: FDA-Public Use
  Company Number: DSA_42648_2010

PATIENT
  Sex: Male

DRUGS (3)
  1. XENAZINE [Suspect]
     Indication: TOURETTE'S DISORDER
     Dosage: 25 MG ORAL, 12.5 MG ORAL, 25 MG ORAL
     Route: 048
     Dates: start: 20100101, end: 20100101
  2. XENAZINE [Suspect]
     Indication: TOURETTE'S DISORDER
     Dosage: 25 MG ORAL, 12.5 MG ORAL, 25 MG ORAL
     Route: 048
     Dates: start: 20100217, end: 20100101
  3. XENAZINE [Suspect]
     Indication: TOURETTE'S DISORDER
     Dosage: 25 MG ORAL, 12.5 MG ORAL, 25 MG ORAL
     Route: 048
     Dates: start: 20100101

REACTIONS (5)
  - ANXIETY [None]
  - DIZZINESS [None]
  - FEELING ABNORMAL [None]
  - INSOMNIA [None]
  - RESTLESSNESS [None]
